FAERS Safety Report 23535525 (Version 1)
Quarter: 2024Q1

REPORT INFORMATION
  Report Type: Report from Study
  Country: ID (occurrence: None)
  Receive Date: 20240218
  Receipt Date: 20240218
  Transmission Date: 20240409
  Serious: Yes (Death)
  Sender: FDA-Public Use
  Company Number: 2024A038879

PATIENT
  Age: 21774 Day
  Sex: Female

DRUGS (1)
  1. TAGRISSO [Suspect]
     Active Substance: OSIMERTINIB
     Dates: start: 20221209

REACTIONS (1)
  - Death [Fatal]

NARRATIVE: CASE EVENT DATE: 20240210
